FAERS Safety Report 8943328 (Version 1)
Quarter: 2012Q4

REPORT INFORMATION
  Report Type: 
  Country: BR (occurrence: BR)
  Receive Date: 20121204
  Receipt Date: 20121204
  Transmission Date: 20130627
  Serious: Yes (Other)
  Sender: FDA-Public Use
  Company Number: BR-AMGEN-BRASP2012077063

PATIENT
  Age: 54 Year
  Sex: Female
  Weight: 80 kg

DRUGS (5)
  1. ENBREL [Suspect]
     Indication: RHEUMATOID ARTHRITIS
     Dosage: 50 mg, once weekly
     Route: 058
     Dates: start: 201203, end: 201206
  2. METHOTREXATE [Concomitant]
     Dosage: 6 tablets of strength 2.5 mg (15 mg), per week
  3. LOSARTAN [Concomitant]
     Dosage: 1 tablet daily
  4. PARACETAMOL [Concomitant]
     Indication: PAIN
     Dosage: strength 750 mg
  5. FOLIC ACID [Concomitant]
     Dosage: 1 tablet per week

REACTIONS (1)
  - Arthropathy [Unknown]
